FAERS Safety Report 21602932 (Version 2)
Quarter: 2022Q4

REPORT INFORMATION
  Report Type: Spontaneous
  Country: MX (occurrence: MX)
  Receive Date: 20221116
  Receipt Date: 20221221
  Transmission Date: 20230112
  Serious: Yes (Other)
  Sender: FDA-Public Use
  Company Number: MX-BAYER-2022P020849

PATIENT

DRUGS (1)
  1. DIPHENHYDRAMINE HYDROCHLORIDE\NAPROXEN SODIUM [Suspect]
     Active Substance: DIPHENHYDRAMINE HYDROCHLORIDE\NAPROXEN SODIUM
     Dosage: UNK

REACTIONS (1)
  - Peptic ulcer [None]
